FAERS Safety Report 19533322 (Version 1)
Quarter: 2021Q3

REPORT INFORMATION
  Report Type: Report from Study
  Country: US (occurrence: US)
  Receive Date: 20210713
  Receipt Date: 20210713
  Transmission Date: 20211014
  Serious: Yes (Disabling)
  Sender: FDA-Public Use
  Company Number: US-SA-2021SA227052

PATIENT
  Sex: Male

DRUGS (1)
  1. DUPIXENT [Suspect]
     Active Substance: DUPILUMAB
     Indication: DERMATITIS ATOPIC

REACTIONS (9)
  - Loss of personal independence in daily activities [Unknown]
  - Pruritus [Unknown]
  - Sleep disorder [Unknown]
  - Emotional disorder [Unknown]
  - Initial insomnia [Unknown]
  - Rash [Unknown]
  - Dry skin [Unknown]
  - Mood altered [Unknown]
  - Treatment noncompliance [Unknown]
